FAERS Safety Report 10067179 (Version 2)
Quarter: 2014Q2

REPORT INFORMATION
  Report Type: Spontaneous
  Country: US (occurrence: None)
  Receive Date: 20140407
  Receipt Date: 20140428
  Transmission Date: 20141212
  Serious: Yes (Hospitalization)
  Sender: FDA-Public Use
  Company Number: US-015129

PATIENT
  Age: 74 Year
  Sex: Male

DRUGS (1)
  1. FIRMAGON [Suspect]
     Indication: PROSTATE CANCER
     Route: 058
     Dates: start: 20140324, end: 20140324

REACTIONS (6)
  - Injection site mass [None]
  - Injection site erythema [None]
  - Injection site warmth [None]
  - Injection site pain [None]
  - Injection site swelling [None]
  - Injection site induration [None]
